FAERS Safety Report 7539021-9 (Version None)
Quarter: 2011Q2

REPORT INFORMATION
  Report Type: 
  Country: None (occurrence: None)
  Receive Date: 20110610
  Receipt Date: 20110531
  Transmission Date: 20111010
  Serious: Yes (Other)
  Sender: FDA-Public Use
  Company Number: PHFR2010GB06096

PATIENT
  Sex: Male

DRUGS (3)
  1. METHADONE HCL [Concomitant]
  2. CLOZAPINE [Suspect]
     Indication: SCHIZOPHRENIA
     Dosage: 300 MG/DAY
     Route: 048
     Dates: start: 20101006
  3. CLOZAPINE [Suspect]
     Dosage: 400 MG/DAY
     Route: 048
     Dates: start: 20101201

REACTIONS (6)
  - GAIT DISTURBANCE [None]
  - INTENTIONAL DRUG MISUSE [None]
  - ACCIDENTAL OVERDOSE [None]
  - SEDATION [None]
  - DIZZINESS [None]
  - URINARY TRACT INFECTION [None]
